FAERS Safety Report 22156874 (Version 1)
Quarter: 2023Q1

REPORT INFORMATION
  Report Type: Spontaneous
  Country: CN (occurrence: None)
  Receive Date: 20230330
  Receipt Date: 20230330
  Transmission Date: 20230418
  Serious: Yes (Other)
  Sender: FDA-Public Use
  Company Number: CN-ROCHE-3319545

PATIENT
  Age: 33 Year
  Sex: Female
  Weight: 60 kg

DRUGS (12)
  1. PERJETA [Suspect]
     Active Substance: PERTUZUMAB
     Indication: Lymphadenopathy
     Dosage: INJECTION
     Route: 041
     Dates: start: 20230221
  2. PERJETA [Suspect]
     Active Substance: PERTUZUMAB
     Indication: Breast mass
  3. HERCEPTIN [Suspect]
     Active Substance: TRASTUZUMAB
     Indication: Lymphadenopathy
     Dosage: INJECTION
     Route: 041
     Dates: start: 20230221
  4. HERCEPTIN [Suspect]
     Active Substance: TRASTUZUMAB
     Indication: Breast mass
  5. CARBOPLATIN [Suspect]
     Active Substance: CARBOPLATIN
     Indication: Lymphadenopathy
     Route: 041
     Dates: start: 20230221
  6. CARBOPLATIN [Suspect]
     Active Substance: CARBOPLATIN
     Indication: Breast mass
  7. PACLITAXEL [Suspect]
     Active Substance: PACLITAXEL
     Indication: Lymphadenopathy
     Route: 041
     Dates: start: 20230221
  8. PACLITAXEL [Suspect]
     Active Substance: PACLITAXEL
     Indication: Breast mass
  9. SODIUM CHLORIDE [Concomitant]
     Active Substance: SODIUM CHLORIDE
     Route: 041
     Dates: start: 20230221, end: 20230221
  10. SODIUM CHLORIDE [Concomitant]
     Active Substance: SODIUM CHLORIDE
     Route: 041
     Dates: start: 20230221, end: 20230221
  11. SODIUM CHLORIDE [Concomitant]
     Active Substance: SODIUM CHLORIDE
     Route: 041
     Dates: start: 20230221, end: 20230221
  12. DEXTROSE [Concomitant]
     Active Substance: DEXTROSE
     Route: 041
     Dates: start: 20230221, end: 20230221

REACTIONS (1)
  - Myelosuppression [Unknown]

NARRATIVE: CASE EVENT DATE: 20230227
